FAERS Safety Report 20461925 (Version 1)
Quarter: 2022Q1

REPORT INFORMATION
  Report Type: Spontaneous
  Country: US (occurrence: US)
  Receive Date: 20220211
  Receipt Date: 20220211
  Transmission Date: 20220423
  Serious: Yes (Hospitalization, Other)
  Sender: FDA-Public Use
  Company Number: US-GLAXOSMITHKLINE-US2022020568

PATIENT
  Sex: Female

DRUGS (1)
  1. TRELEGY ELLIPTA [Suspect]
     Active Substance: FLUTICASONE FUROATE\UMECLIDINIUM BROMIDE\VILANTEROL TRIFENATATE
     Indication: Chronic obstructive pulmonary disease
     Dosage: 1 PUFF(S), QD, TRELEGY ELLIPTA 200/62.5/25 MCGUSE 1 INHALATION BY MOUTH EVERY DAY
     Route: 055
     Dates: start: 202001

REACTIONS (2)
  - Cerebrovascular accident [Unknown]
  - Renal failure [Not Recovered/Not Resolved]
